FAERS Safety Report 6256858-7 (Version None)
Quarter: 2009Q3

REPORT INFORMATION
  Report Type: 
  Country: None (occurrence: None)
  Receive Date: 20090706
  Receipt Date: 20090626
  Transmission Date: 20100115
  Serious: Yes (Hospitalization)
  Sender: FDA-Public Use
  Company Number: PHEH2009US06847

PATIENT
  Sex: Female

DRUGS (1)
  1. EXJADE [Suspect]
     Indication: BLOOD DISORDER
     Dosage: 1250 MG, QD
     Route: 048
     Dates: start: 20081015

REACTIONS (1)
  - BONE MARROW TRANSPLANT [None]
